FAERS Safety Report 7037475-8 (Version None)
Quarter: 2010Q4

REPORT INFORMATION
  Report Type: 
  Country: None (occurrence: None)
  Receive Date: 20101011
  Receipt Date: 20101005
  Transmission Date: 20110411
  Serious: Yes (Hospitalization)
  Sender: FDA-Public Use
  Company Number: A0871671A

PATIENT
  Age: 82 Year
  Sex: Female

DRUGS (7)
  1. RYTHMOL SR [Suspect]
     Indication: ATRIAL FIBRILLATION
     Dosage: 325MG TWICE PER DAY
     Route: 048
     Dates: start: 20070101, end: 20100701
  2. PREDNISONE [Concomitant]
  3. COUMADIN [Concomitant]
  4. LIPITOR [Concomitant]
  5. SYNTHROID [Concomitant]
  6. CELEXA [Concomitant]
  7. NEXIUM [Concomitant]

REACTIONS (9)
  - ATRIAL FIBRILLATION [None]
  - BACK PAIN [None]
  - CARDIAC ABLATION [None]
  - CARDIAC PACEMAKER INSERTION [None]
  - DYSPEPSIA [None]
  - HEART RATE INCREASED [None]
  - MALAISE [None]
  - PHARYNGEAL DISORDER [None]
  - TOOTH DISORDER [None]
